FAERS Safety Report 5023429-X (Version None)
Quarter: 2006Q2

REPORT INFORMATION
  Report Type: 
  Country: None (occurrence: None)
  Receive Date: 20060606
  Receipt Date: 20060529
  Transmission Date: 20061013
  Serious: Yes (Life-Threatening, Hospitalization, Other)
  Sender: FDA-Public Use
  Company Number: CIP06001121

PATIENT
  Age: 76 Year
  Sex: Male
  Weight: 62 kg

DRUGS (3)
  1. ACTONEL [Suspect]
     Indication: OSTEOPOROSIS
     Dosage: 35 MG ONCE WEEKLY, ORAL
     Route: 048
     Dates: start: 20040901, end: 20060401
  2. PANZYNORM (STOMACH DESICCATED, PANCREATIN, OX BILE EXTRACT) [Concomitant]
  3. HEPAVIT (HYDROXOCOBALAMIN ACETATE) [Concomitant]

REACTIONS (5)
  - CHILLS [None]
  - DIARRHOEA [None]
  - NAUSEA [None]
  - PYREXIA [None]
  - VERTIGO [None]
